FAERS Safety Report 18305918 (Version 14)
Quarter: 2023Q1

REPORT INFORMATION
  Report Type: Report from Study
  Country: CA (occurrence: CA)
  Receive Date: 20200923
  Receipt Date: 20230202
  Transmission Date: 20230417
  Serious: Yes (Hospitalization, Other)
  Sender: FDA-Public Use
  Company Number: NVSC2020CA208956

PATIENT
  Age: 66 Year
  Sex: Male

DRUGS (4)
  1. SANDOSTATIN LAR DEPOT [Suspect]
     Active Substance: OCTREOTIDE ACETATE
     Indication: Carcinoid tumour
     Dosage: 30 MG, Q4W
     Route: 030
     Dates: start: 20200625
  2. SANDOSTATIN LAR DEPOT [Suspect]
     Active Substance: OCTREOTIDE ACETATE
  3. SANDOSTATIN LAR DEPOT [Suspect]
     Active Substance: OCTREOTIDE ACETATE
  4. KEPPRA [Concomitant]
     Active Substance: LEVETIRACETAM
     Indication: Product used for unknown indication
     Dosage: 500 MG, BID (FOR 6 WEEKS)
     Route: 065

REACTIONS (13)
  - Blood pressure systolic increased [Unknown]
  - Blood pressure increased [Unknown]
  - Seizure [Unknown]
  - Blood magnesium decreased [Unknown]
  - Tremor [Unknown]
  - Eye movement disorder [Unknown]
  - Photopsia [Unknown]
  - Hyperhidrosis [Unknown]
  - Lethargy [Unknown]
  - SARS-CoV-2 test positive [Unknown]
  - Dizziness [Unknown]
  - Asthenia [Unknown]
  - Fatigue [Unknown]

NARRATIVE: CASE EVENT DATE: 20200723
